FAERS Safety Report 5404372-0 (Version None)
Quarter: 2007Q3

REPORT INFORMATION
  Report Type: 
  Country: None (occurrence: None)
  Receive Date: 20070711
  Receipt Date: 20061009
  Transmission Date: 20080115
  Serious: Yes (Other)
  Sender: FDA-Public Use
  Company Number: 238343

PATIENT
  Age: 53 Year
  Sex: Female
  Weight: 64.4 kg

DRUGS (6)
  1. ACTIVELLA [Suspect]
     Indication: MENOPAUSAL SYMPTOMS
     Dosage: ORAL
     Route: 048
     Dates: start: 20010101, end: 20020801
  2. PREMPRO [Suspect]
     Indication: MENOPAUSAL SYMPTOMS
     Dosage: 2.5 MG / 0.625 MG,
     Dates: start: 19990101, end: 20020227
  3. PREMPHASE (MEDROXYPROGESTERONE ACETATE, ETROGENS CONJUGATED) [Suspect]
     Indication: MENOPAUSAL SYMPTOMS
     Dosage: 0.625 / 5 MG
     Dates: start: 19970101, end: 20000301
  4. NORVASC [Concomitant]
  5. PREVACID [Concomitant]
  6. MACROBID [Concomitant]

REACTIONS (1)
  - BREAST CANCER [None]
